FAERS Safety Report 7821874-8 (Version None)
Quarter: 2011Q4

REPORT INFORMATION
  Report Type: 
  Country: None (occurrence: None)
  Receive Date: 20111018
  Receipt Date: 20110805
  Transmission Date: 20120403
  Serious: No
  Sender: FDA-Public Use
  Company Number: US-ASTRAZENECA-2011SE46955

PATIENT
  Age: 51 Year
  Sex: Female
  Weight: 71.2 kg

DRUGS (6)
  1. PROTONIX [Concomitant]
  2. VENTOLIN [Concomitant]
  3. VESICARE [Concomitant]
  4. SYMBICORT [Suspect]
     Indication: ASTHMA
     Dosage: 160/4.5 MCG, 2 PUFFS, TWO TIMES A DAY
     Route: 055
     Dates: start: 20110701
  5. LEXAPRO [Concomitant]
  6. EVOMIST [Concomitant]

REACTIONS (1)
  - LARYNGITIS [None]
